FAERS Safety Report 7304085-4 (Version None)
Quarter: 2011Q1

REPORT INFORMATION
  Report Type: 
  Country: None (occurrence: None)
  Receive Date: 20110221
  Receipt Date: 20110210
  Transmission Date: 20110831
  Serious: Yes (Other)
  Sender: FDA-Public Use
  Company Number: PHHY2010US29176

PATIENT
  Sex: Female

DRUGS (12)
  1. MULTI-VITAMIN [Concomitant]
     Dosage: 1 DF, QD
  2. AMBIEN [Concomitant]
     Dosage: 10 MG, PRN
  3. EXTAVIA [Suspect]
     Indication: MULTIPLE SCLEROSIS
     Dosage: 0.25 MG, QOD
     Route: 058
     Dates: start: 20100322
  4. PREMARIN [Concomitant]
     Dosage: 0.625 MG, QD
  5. TERBINAFINE HCL [Concomitant]
     Dosage: 250 MG X 7 PILLS EVERY MONTH
  6. FOLIC ACID [Concomitant]
     Dosage: UNK
  7. SERAX [Concomitant]
     Dosage: 10 MG, PRN
  8. ALEVE [Concomitant]
     Indication: PAIN
     Dosage: 500 MG, PRN
  9. PROGESTERON [Concomitant]
     Dosage: 2.5 MG 2 X WEEK
  10. EXTAVIA [Suspect]
     Dosage: 0.25 MG, QOD
     Route: 058
     Dates: start: 20100413
  11. VITAMIN E [Concomitant]
     Dosage: UNK
  12. LOVAZA [Concomitant]
     Dosage: UNK

REACTIONS (9)
  - SPEECH DISORDER [None]
  - URTICARIA [None]
  - PAIN [None]
  - INJECTION SITE PAIN [None]
  - UPPER LIMB FRACTURE [None]
  - PRURITUS [None]
  - INJECTION SITE HAEMATOMA [None]
  - FALL [None]
  - INJECTION SITE ERYTHEMA [None]
